FAERS Safety Report 5809010-0 (Version None)
Quarter: 2008Q3

REPORT INFORMATION
  Report Type: 
  Country: None (occurrence: None)
  Receive Date: 20080714
  Receipt Date: 20080703
  Transmission Date: 20090109
  Serious: Yes (Other)
  Sender: FDA-Public Use
  Company Number: KR-JNJFOC-20080701505

PATIENT
  Sex: Female

DRUGS (1)
  1. ULTRACET [Suspect]
     Indication: DRUG USE FOR UNKNOWN INDICATION
     Dosage: ACETAMINOPHEN 325 MG, TRAMADOL 37.5 MG
     Route: 048

REACTIONS (1)
  - GALACTORRHOEA [None]
